FAERS Safety Report 12945781 (Version 2)
Quarter: 2016Q4

REPORT INFORMATION
  Report Type: Spontaneous
  Country: US (occurrence: US)
  Receive Date: 20161116
  Receipt Date: 20161211
  Transmission Date: 20170207
  Serious: Yes (Hospitalization, Other)
  Sender: FDA-Public Use
  Company Number: US-009507513-1611USA006396

PATIENT
  Sex: Female

DRUGS (3)
  1. KEYTRUDA [Suspect]
     Active Substance: PEMBROLIZUMAB
     Indication: BREAST CANCER
  2. KEYTRUDA [Suspect]
     Active Substance: PEMBROLIZUMAB
     Indication: RECTAL CANCER
  3. KEYTRUDA [Suspect]
     Active Substance: PEMBROLIZUMAB
     Indication: HEREDITARY NON-POLYPOSIS COLORECTAL CANCER SYNDROME
     Dosage: UNKNOWN WEIGHT BASED DOSE, EVERY THREE WEEKS (3 DOSES IN TOTAL WERE GIVEN)
     Route: 042
     Dates: start: 20160909, end: 2016

REACTIONS (3)
  - Nephritis [Not Recovered/Not Resolved]
  - Fatigue [Unknown]
  - Product use issue [Unknown]

NARRATIVE: CASE EVENT DATE: 2016
